FAERS Safety Report 15301087 (Version 1)
Quarter: 2018Q3

REPORT INFORMATION
  Report Type: Spontaneous
  Country: GH (occurrence: GH)
  Receive Date: 20180821
  Receipt Date: 20180821
  Transmission Date: 20181010
  Serious: Yes (Other)
  Sender: FDA-Public Use
  Company Number: GH-JNJFOC-20180820632

PATIENT

DRUGS (1)
  1. VERMOX [Suspect]
     Active Substance: MEBENDAZOLE
     Indication: HELMINTHIC INFECTION
     Route: 065

REACTIONS (3)
  - Adverse event [Unknown]
  - Suspected counterfeit product [Unknown]
  - Drug ineffective [Unknown]
